FAERS Safety Report 6266473-7 (Version None)
Quarter: 2009Q3

REPORT INFORMATION
  Report Type: 
  Country: None (occurrence: None)
  Receive Date: 20090710
  Receipt Date: 20090624
  Transmission Date: 20100115
  Serious: Yes (Other)
  Sender: FDA-Public Use
  Company Number: B0581985A

PATIENT
  Age: 22 Year
  Sex: Female

DRUGS (2)
  1. AMOXICILLIN TRIHYDRATE [Suspect]
     Indication: PHARYNGITIS
  2. ACETAMINOPHEN [Concomitant]

REACTIONS (6)
  - ABDOMINAL PAIN [None]
  - BACK PAIN [None]
  - DRUG RASH WITH EOSINOPHILIA AND SYSTEMIC SYMPTOMS [None]
  - HEPATITIS [None]
  - LEUKOPENIA [None]
  - PYREXIA [None]
